FAERS Safety Report 9654981 (Version 2)
Quarter: 2013Q4

REPORT INFORMATION
  Report Type: Spontaneous
  Country: US (occurrence: US)
  Receive Date: 20131029
  Receipt Date: 20131029
  Transmission Date: 20140711
  Serious: Yes (Death, Other)
  Sender: FDA-Public Use
  Company Number: US-NAPPMUNDI-USA-2012-0091010

PATIENT
  Age: 21 Year
  Sex: Male
  Weight: 79.37 kg

DRUGS (2)
  1. OXYCONTIN (NDA 22-272) [Suspect]
     Indication: DRUG ABUSE
  2. ALPRAZOLAM [Suspect]
     Indication: DRUG ABUSE

REACTIONS (2)
  - Accidental overdose [Fatal]
  - Drug abuse [Unknown]
